FAERS Safety Report 9304083 (Version 2)
Quarter: 2013Q3

REPORT INFORMATION
  Report Type: Spontaneous
  Country: US (occurrence: None)
  Receive Date: 20121226
  Receipt Date: 20130710
  Transmission Date: 20140515
  Serious: Yes (Hospitalization)
  Sender: FDA-Public Use
  Company Number: 2012-7718

PATIENT
  Age: 76 Year
  Sex: Female

DRUGS (1)
  1. SOMATULINE DEPOT INJECTION (90MG)(SOMATULINE SR)(LANREOTIDE)(LANREOTIDE ACETATE) [Suspect]
     Indication: ACROMEGALY
     Dosage: (90 MG, 1 IN 1 M)
     Route: 058
     Dates: start: 20121025

REACTIONS (3)
  - Gastrointestinal infection [None]
  - Diarrhoea [None]
  - Flatulence [None]
